FAERS Safety Report 24763075 (Version 1)
Quarter: 2024Q4

REPORT INFORMATION
  Report Type: Report from Study
  Country: US (occurrence: US)
  Receive Date: 20241222
  Receipt Date: 20241222
  Transmission Date: 20250114
  Serious: Yes (Other)
  Sender: JOHNSON AND JOHNSON
  Company Number: US-JNJFOC-20241233670

PATIENT
  Age: 77 Year
  Sex: Male

DRUGS (2)
  1. SPRAVATO [Suspect]
     Active Substance: ESKETAMINE
     Indication: Depression
     Dosage: ^^84 MG, 3 TOTAL DOSES^^
     Route: 045
     Dates: start: 20241205, end: 20241216
  2. SPRAVATO [Suspect]
     Active Substance: ESKETAMINE
     Dosage: ^^56 MG, 7 TOTAL DOSES^^
     Route: 045
     Dates: start: 20241008, end: 20241125

REACTIONS (1)
  - Hallucination, visual [Recovered/Resolved]

NARRATIVE: CASE EVENT DATE: 20241201
